FAERS Safety Report 4378715-3 (Version None)
Quarter: 2004Q2

REPORT INFORMATION
  Report Type: 
  Country: None (occurrence: None)
  Receive Date: 20040609
  Receipt Date: 20040525
  Transmission Date: 20050107
  Serious: Yes (Hospitalization)
  Sender: FDA-Public Use
  Company Number: A06200400161

PATIENT
  Age: 76 Year
  Sex: Female

DRUGS (7)
  1. STILNOX - (ZOLPIDEM) - TABLET - 10 MG [Suspect]
     Indication: SLEEP DISORDER
     Dosage: 10 MG OD
     Route: 048
     Dates: start: 20030101, end: 20040417
  2. REMERON [Suspect]
     Indication: DYSTHYMIC DISORDER
     Dosage: 30 MG OD
     Route: 048
     Dates: start: 20030401, end: 20040417
  3. MICROSER - (BETAHISTINE HYDROCHLORIDE) - TABLET - 8 MG [Suspect]
     Indication: DIZZINESS
     Dosage: 8 MG TID
     Route: 048
     Dates: start: 20030101, end: 20040417
  4. NITRODERM TTS (CLYCERYL TRINITRATE) [Concomitant]
  5. SPIROLANG (SPIRONOLACTONE) [Concomitant]
  6. CARDIRENE (ACETYLSALICYLATE LYSINE) [Concomitant]
  7. LEXOTAN (BROMAZEPAM) [Concomitant]

REACTIONS (6)
  - ANAEMIA [None]
  - BLOOD FIBRINOGEN DECREASED [None]
  - CARDIAC DISORDER [None]
  - FIBRIN D DIMER INCREASED [None]
  - HEPATIC NECROSIS [None]
  - THROMBOCYTOPENIA [None]
